FAERS Safety Report 8797180 (Version 1)
Quarter: 2012Q4

REPORT INFORMATION
  Report Type: 
  Country: JP (occurrence: JP)
  Receive Date: 20120919
  Receipt Date: 20120919
  Transmission Date: 20130627
  Serious: Yes (Hospitalization)
  Sender: FDA-Public Use
  Company Number: JP-BAYER-2012-073094

PATIENT
  Age: 83 Year
  Sex: Male
  Weight: 49 kg

DRUGS (12)
  1. BAYASPIRIN [Suspect]
     Indication: PROSTHETIC VESSEL IMPLANTATION
     Dosage: 100 mg, QD
     Route: 048
     Dates: start: 20120705, end: 20120717
  2. PLETAAL [Suspect]
     Indication: ISCHAEMIA
     Dosage: Daily dose 200 mg
     Route: 048
     Dates: start: 20120705, end: 20120713
  3. PARIET [Concomitant]
     Indication: PROPHYLAXIS AGAINST GASTROINTESTINAL ULCER
     Dosage: Daily dose 20 mg
     Route: 048
     Dates: start: 20120705, end: 20120713
  4. LUPRAC [Concomitant]
     Indication: OEDEMA
     Dosage: Daily dose 8 mg
     Route: 048
     Dates: start: 20120705, end: 20120713
  5. LIVALO [Concomitant]
     Indication: HYPERCHOLESTEROLAEMIA
     Dosage: Daily dose 2 mg
     Route: 048
  6. FLIVAS [Concomitant]
     Indication: BENIGN PROSTATIC HYPERPLASIA
     Dosage: Daily dose 75 mg
     Route: 048
  7. TALION [Concomitant]
     Indication: RHINITIS ALLERGIC
     Dosage: Daily dose 20 mg
     Route: 048
  8. CINAL [ASCORBIC ACID,CALCIUM PANTOTHENATE] [Concomitant]
     Indication: VITAMIN SUPPLEMENTATION
     Dosage: Daily dose 3 g
     Route: 048
  9. MAGMITT [Concomitant]
     Indication: PEPTIC ULCER
     Dosage: Daily dose 750 mg
     Route: 048
  10. CEFAMEZIN [Concomitant]
     Indication: INFECTION PROPHYLAXIS
     Dosage: Daily dose 1 g
     Route: 042
     Dates: start: 20120710, end: 20120713
  11. UNASYN [Concomitant]
     Indication: INFECTION PROPHYLAXIS
     Dosage: Daily dose 3 g
     Route: 042
     Dates: start: 20120704, end: 20120709
  12. WARFARIN POTASSIUM [Concomitant]
     Indication: PERIPHERAL ARTERIAL OCCLUSIVE DISEASE
     Dosage: Daily dose 2.5 mg
     Route: 048

REACTIONS (2)
  - Pyrexia [Recovered/Resolved]
  - Eosinophil count increased [Recovering/Resolving]
